FAERS Safety Report 21846550 (Version 1)
Quarter: 2023Q1

REPORT INFORMATION
  Report Type: Report from Study
  Country: US (occurrence: US)
  Receive Date: 20230111
  Receipt Date: 20230111
  Transmission Date: 20230418
  Serious: Yes (Other)
  Sender: FDA-Public Use
  Company Number: US-ALNYLAM PHARMACEUTICALS, INC.-ALN-2022-004253

PATIENT

DRUGS (3)
  1. AMVUTTRA [Suspect]
     Active Substance: VUTRISIRAN
     Indication: Hereditary neuropathic amyloidosis
     Dosage: UNK
     Route: 065
     Dates: start: 20220822
  2. AMVUTTRA [Suspect]
     Active Substance: VUTRISIRAN
     Dosage: UNK
     Route: 065
     Dates: start: 20221121
  3. TAFAMIDIS [Concomitant]
     Active Substance: TAFAMIDIS
     Indication: Product used for unknown indication
     Route: 065

REACTIONS (6)
  - Pulmonary oedema [Unknown]
  - Musculoskeletal discomfort [Recovering/Resolving]
  - Drug ineffective [Not Recovered/Not Resolved]
  - Hypoaesthesia [Unknown]
  - Arthralgia [Unknown]
  - Malaise [Unknown]
